FAERS Safety Report 9103286 (Version 4)
Quarter: 2013Q3

REPORT INFORMATION
  Report Type: Spontaneous
  Country: US (occurrence: US)
  Receive Date: 20130219
  Receipt Date: 20130808
  Transmission Date: 20140515
  Serious: No
  Sender: FDA-Public Use
  Company Number: US-PFIZER INC-2013061498

PATIENT
  Age: 51 Year
  Sex: Female
  Weight: 105 kg

DRUGS (20)
  1. BOSULIF [Suspect]
     Indication: CHRONIC MYELOID LEUKAEMIA
     Dosage: 500 MG, 1X/DAY [1 TAB DAILY WITH FOOD]
     Route: 048
     Dates: start: 20130212, end: 20130214
  2. BOSULIF [Suspect]
     Dosage: UNK
     Dates: start: 201302
  3. GLEEVEC [Concomitant]
     Indication: NEOPLASM MALIGNANT
     Dosage: 400 MG, 1X/DAY
     Route: 048
     Dates: start: 200902, end: 201302
  4. XANAX [Concomitant]
     Indication: ANXIETY
     Dosage: 0.5 MG, 4X/DAY, AS NEEDED
  5. XANAX [Concomitant]
     Dosage: 2 MG, 4X/DAY
     Route: 048
  6. XANAX [Concomitant]
     Dosage: 0.5 MG, 3X/DAY
  7. DURAGESIC [Concomitant]
     Indication: PAIN
     Dosage: 200 UG, EVERY 48 HR
     Route: 062
  8. VENOFER [Concomitant]
     Indication: MINERAL SUPPLEMENTATION
     Dosage: 100 MG, UNK, ONCE EVERY 14 DAYS
     Route: 042
  9. VENOFER [Concomitant]
     Indication: RENAL IMPAIRMENT
  10. VENOFER [Concomitant]
     Indication: IRON DEFICIENCY ANAEMIA
  11. SYNTHROID [Concomitant]
     Indication: HYPOTHYROIDISM
     Dosage: 200 UG, 1X/DAY AT 6 AM
     Route: 048
  12. BUSPAR [Concomitant]
     Indication: ANXIETY
     Dosage: 5 MG, 2X/DAY
     Route: 048
  13. PROZAC [Concomitant]
     Indication: DEPRESSION
     Dosage: 40 MG, 1X/DAY
     Route: 048
  14. COMPAZINE [Concomitant]
     Dosage: 20 MG, AS NEEDED
  15. LOMOTIL [Concomitant]
     Dosage: UNK, AS NEEDED
  16. CYMBALTA [Concomitant]
     Dosage: 20 MG, UNK
  17. LAMICTAL [Concomitant]
     Dosage: UNK
  18. SUBOXONE [Concomitant]
     Dosage: UNK, 3DAY
  19. LIBRIUM [Concomitant]
     Dosage: UNK
  20. TRAMADOL [Concomitant]
     Indication: SLEEP DISORDER
     Dosage: UNK. AS NEEDED

REACTIONS (6)
  - Diarrhoea [Recovered/Resolved]
  - Anxiety [Unknown]
  - Bone pain [Recovered/Resolved]
  - Amnesia [Unknown]
  - Ankle fracture [Unknown]
  - Fall [Unknown]
